FAERS Safety Report 6666237-6 (Version None)
Quarter: 2010Q2

REPORT INFORMATION
  Report Type: 
  Country: None (occurrence: None)
  Receive Date: 20100402
  Receipt Date: 20100322
  Transmission Date: 20101027
  Serious: Yes (Hospitalization, Other)
  Sender: FDA-Public Use
  Company Number: MX-ELI_LILLY_AND_COMPANY-MX200810004377

PATIENT
  Age: 82 Year
  Sex: Female
  Weight: 49 kg

DRUGS (9)
  1. FORTEO [Suspect]
     Indication: OSTEOPOROSIS
     Dosage: 20 UG, DAILY (1/D)
     Route: 058
     Dates: start: 20080601, end: 20080801
  2. FORTEO [Suspect]
     Dosage: 20 UG, DAILY (1/D)
     Route: 058
     Dates: start: 20081001, end: 20081014
  3. FORTEO [Suspect]
     Dosage: 20 UG, DAILY (1/D)
     Route: 058
     Dates: end: 20100201
  4. CENTRUM [Concomitant]
     Dosage: UNK UNK, DAILY (1/D)
     Route: 065
  5. FOLIC ACID [Concomitant]
     Dosage: 10 MG, DAILY (1/D)
     Route: 065
  6. LOSARTAN POTASSIUM [Concomitant]
     Indication: HYPERTENSION
     Dosage: UNK, UNKNOWN
     Route: 065
  7. PROPAFENONE HCL [Concomitant]
     Indication: ARRHYTHMIA
     Dosage: UNK, UNKNOWN
     Route: 065
  8. PARACETAMOL [Concomitant]
     Indication: PAIN
     Dosage: UNK, AS NEEDED
     Route: 065
  9. PREDNISONE TAB [Concomitant]
     Indication: HYPERSENSITIVITY
     Dosage: UNK, UNKNOWN
     Route: 065

REACTIONS (6)
  - ARRHYTHMIA [None]
  - DERMATITIS ALLERGIC [None]
  - DRUG INEFFECTIVE [None]
  - HYPERTENSIVE CRISIS [None]
  - MEMORY IMPAIRMENT [None]
  - VERTIGO [None]
